FAERS Safety Report 12114023 (Version 1)
Quarter: 2016Q1

REPORT INFORMATION
  Report Type: Spontaneous
  Country: US (occurrence: None)
  Receive Date: 20160224
  Receipt Date: 20160224
  Transmission Date: 20160526
  Serious: No
  Sender: FDA-Public Use
  Company Number: None

PATIENT
  Age: 3 Year
  Sex: Male
  Weight: 17 kg

DRUGS (4)
  1. HEPARIN [Concomitant]
     Active Substance: HEPARIN SODIUM
  2. NORMAL SALINE [Concomitant]
     Active Substance: SODIUM CHLORIDE
  3. VINCRISTINE [Suspect]
     Active Substance: VINCRISTINE
     Indication: BRAIN NEOPLASM
     Route: 042
  4. VINCRISTINE INFUSION [Concomitant]

REACTIONS (1)
  - Urticaria [None]

NARRATIVE: CASE EVENT DATE: 20160121
